FAERS Safety Report 14418486 (Version 1)
Quarter: 2018Q1

REPORT INFORMATION
  Report Type: Spontaneous
  Country: US (occurrence: US)
  Receive Date: 20180122
  Receipt Date: 20180122
  Transmission Date: 20180509
  Serious: Yes (Death, Hospitalization)
  Sender: FDA-Public Use
  Company Number: US-BAYER-2018-007297

PATIENT
  Age: 16 Year
  Sex: Male

DRUGS (1)
  1. ACETYLSALICYLIC ACID({=100 MG) [Suspect]
     Active Substance: ASPIRIN
     Dosage: 1274 MG/KG, ONCE

REACTIONS (8)
  - Respiratory failure [None]
  - Cardiac arrest [Fatal]
  - Abdominal pain [None]
  - Respiratory distress [None]
  - Tinnitus [None]
  - Intentional overdose [None]
  - Respiratory acidosis [None]
  - Metabolic acidosis [None]
